FAERS Safety Report 18002333 (Version 1)
Quarter: 2020Q3

REPORT INFORMATION
  Report Type: Spontaneous
  Country: US (occurrence: US)
  Receive Date: 20200710
  Receipt Date: 20200710
  Transmission Date: 20201103
  Serious: No
  Sender: FDA-Public Use
  Company Number: US-GLENMARK PHARMACEUTICALS-2020GMK048094

PATIENT

DRUGS (1)
  1. NITROGLYCERIN SUBLINGUAL TABLETS USP 0.3MG [Suspect]
     Active Substance: NITROGLYCERIN
     Indication: ANGINA PECTORIS
     Dosage: UNK, PRN (TOOK THE TABLET WHENEVER HE FELT HEART ATTACK)
     Route: 065

REACTIONS (2)
  - Product administration error [Unknown]
  - Product storage error [Unknown]
